FAERS Safety Report 25797783 (Version 1)
Quarter: 2025Q3

REPORT INFORMATION
  Report Type: Spontaneous
  Country: US (occurrence: US)
  Receive Date: 20250912
  Receipt Date: 20250912
  Transmission Date: 20251021
  Serious: Yes (Other)
  Sender: SANOFI AVENTIS
  Company Number: US-SA-2025SA271778

PATIENT
  Age: 73 Year
  Sex: Female
  Weight: 59.55 kg

DRUGS (7)
  1. DUPIXENT [Suspect]
     Active Substance: DUPILUMAB
     Indication: Dermatitis atopic
     Route: 058
     Dates: start: 2025, end: 2025
  2. OZEMPIC [Concomitant]
     Active Substance: SEMAGLUTIDE
  3. ERGOCALCIFEROL [Concomitant]
     Active Substance: ERGOCALCIFEROL
  4. REPATHA [Concomitant]
     Active Substance: EVOLOCUMAB
  5. TELMISARTAN [Concomitant]
     Active Substance: TELMISARTAN
  6. JARDIANCE [Concomitant]
     Active Substance: EMPAGLIFLOZIN
  7. MELOXICAM [Concomitant]
     Active Substance: MELOXICAM

REACTIONS (3)
  - Myocardial infarction [Unknown]
  - Vomiting [Unknown]
  - Vision blurred [Unknown]

NARRATIVE: CASE EVENT DATE: 20250101
